FAERS Safety Report 26138633 (Version 2)
Quarter: 2025Q4

REPORT INFORMATION
  Report Type: Spontaneous
  Country: EU (occurrence: EU)
  Receive Date: 20251210
  Receipt Date: 20251225
  Transmission Date: 20260117
  Serious: Yes (Other)
  Sender: SANOFI AVENTIS
  Company Number: EU-SA-2025SA366584

PATIENT
  Age: 6 Month
  Weight: 5 kg

DRUGS (1)
  1. NIRSEVIMAB [Suspect]
     Active Substance: NIRSEVIMAB
     Indication: Prophylaxis
     Dosage: 50 MG, 1X
     Route: 030
     Dates: start: 20201010, end: 20201010

REACTIONS (1)
  - Respiratory syncytial virus bronchiolitis [Recovered/Resolved]

NARRATIVE: CASE EVENT DATE: 20251203
